FAERS Safety Report 25848173 (Version 1)
Quarter: 2025Q3

REPORT INFORMATION
  Report Type: Spontaneous
  Country: US (occurrence: US)
  Receive Date: 20250925
  Receipt Date: 20250925
  Transmission Date: 20251020
  Serious: Yes (Death)
  Sender: CALLIDITAS THERAPEUTICS AB
  Company Number: US-Calliditas-2025CAL02626

PATIENT
  Age: 64 Year
  Sex: Female

DRUGS (8)
  1. TARPEYO [Suspect]
     Active Substance: BUDESONIDE
     Indication: IgA nephropathy
     Route: 048
     Dates: start: 20250607
  2. ALLOPURINOL [Concomitant]
     Active Substance: ALLOPURINOL
  3. CALCITRIOL [Concomitant]
     Active Substance: CALCITRIOL
  4. FAMOTIDINE [Concomitant]
     Active Substance: FAMOTIDINE
  5. LOSARTAN [Concomitant]
     Active Substance: LOSARTAN
  6. SIMVASTATIN [Concomitant]
     Active Substance: SIMVASTATIN
  7. SYNTHROID [Concomitant]
     Active Substance: LEVOTHYROXINE SODIUM
  8. VIRT-PHOS 250 NEUTRAL [Concomitant]

REACTIONS (3)
  - Swelling face [Not Recovered/Not Resolved]
  - Peripheral swelling [Not Recovered/Not Resolved]
  - Death [Fatal]
